FAERS Safety Report 9107548 (Version 1)
Quarter: 2013Q1

REPORT INFORMATION
  Report Type: Spontaneous
  Country: US (occurrence: US)
  Receive Date: 20130221
  Receipt Date: 20130221
  Transmission Date: 20140127
  Serious: No
  Sender: FDA-Public Use
  Company Number: US-PFIZER INC-2013064494

PATIENT
  Age: 4 Year
  Sex: Female
  Weight: 19.05 kg

DRUGS (3)
  1. CHILDRENS ADVIL [Suspect]
     Indication: PROCEDURAL PAIN
     Dosage: UNK, ONE AND HALF TEASPOONS
     Route: 048
     Dates: start: 20130215, end: 201302
  2. CHILDRENS ADVIL [Suspect]
     Dosage: UNK
     Route: 048
     Dates: start: 201302, end: 20130218
  3. TYLENOL [Concomitant]
     Dosage: UNK

REACTIONS (2)
  - Screaming [Unknown]
  - Throat irritation [Unknown]
